FAERS Safety Report 15294821 (Version 1)
Quarter: 2018Q3

REPORT INFORMATION
  Report Type: Spontaneous
  Country: US (occurrence: US)
  Receive Date: 20180820
  Receipt Date: 20180820
  Transmission Date: 20181010
  Serious: No
  Sender: FDA-Public Use
  Company Number: US-ACADIA PHARMACEUTICALS INC.-ACA-2018-009720

PATIENT
  Age: 66 Year
  Sex: Female

DRUGS (4)
  1. THIOTHIXENE. [Concomitant]
     Active Substance: THIOTHIXENE
     Indication: PRODUCT USED FOR UNKNOWN INDICATION
     Route: 065
  2. QUETIAPINE. [Concomitant]
     Active Substance: QUETIAPINE
     Indication: PRODUCT USED FOR UNKNOWN INDICATION
  3. PIMAVANSERIN [Suspect]
     Active Substance: PIMAVANSERIN
     Indication: SCHIZOPHRENIA
  4. PIMAVANSERIN [Suspect]
     Active Substance: PIMAVANSERIN
     Indication: DEMENTIA
     Dosage: UNK
     Route: 065

REACTIONS (2)
  - Therapeutic response unexpected [Unknown]
  - Off label use [Unknown]
